FAERS Safety Report 10093267 (Version 1)
Quarter: 2014Q2

REPORT INFORMATION
  Report Type: Spontaneous
  Country: US (occurrence: US)
  Receive Date: 20140421
  Receipt Date: 20140421
  Transmission Date: 20141212
  Serious: No
  Sender: FDA-Public Use
  Company Number: US-SA-2013SA123062

PATIENT
  Age: 86 Year
  Sex: Female

DRUGS (11)
  1. ALLEGRA [Suspect]
     Indication: PRURITUS
     Route: 048
     Dates: start: 20130905
  2. ALLEGRA [Suspect]
     Indication: PRURITUS
     Route: 048
     Dates: start: 20131105
  3. ASPIRIN [Suspect]
     Route: 065
  4. IBUPROFEN [Suspect]
     Indication: PAIN
     Route: 065
  5. HYDROCHLOROTHIAZIDE [Suspect]
     Route: 065
  6. RANITIDINE [Concomitant]
     Dates: start: 20130905
  7. RANITIDINE [Concomitant]
     Dates: start: 20131105
  8. CETIRIZINE [Concomitant]
     Dates: start: 20130905
  9. CETIRIZINE [Concomitant]
     Dates: start: 20131105
  10. BENADRYL [Concomitant]
     Dates: start: 20130905
  11. CORTICOSTEROID NOS [Concomitant]
     Dates: start: 20130905

REACTIONS (7)
  - Eye pruritus [Not Recovered/Not Resolved]
  - Nasal discomfort [Not Recovered/Not Resolved]
  - Rhinorrhoea [Not Recovered/Not Resolved]
  - Dehydration [Not Recovered/Not Resolved]
  - Pruritus generalised [Not Recovered/Not Resolved]
  - Sleep disorder [Not Recovered/Not Resolved]
  - Drug ineffective [Unknown]
